FAERS Safety Report 7753672-8 (Version None)
Quarter: 2011Q3

REPORT INFORMATION
  Report Type: 
  Country: None (occurrence: None)
  Receive Date: 20110915
  Receipt Date: 20110915
  Transmission Date: 20111222
  Serious: Yes (Hospitalization)
  Sender: FDA-Public Use
  Company Number: None

PATIENT
  Age: 84 Year
  Sex: Female
  Weight: 59 kg

DRUGS (34)
  1. METHOTHREXATE [Concomitant]
     Route: 048
  2. GUAIFENESIN DM [Concomitant]
     Route: 048
  3. LEVOTHYROXINE SODIUM [Concomitant]
     Route: 048
  4. GABAPENTIN [Concomitant]
     Route: 048
  5. ALBUTEROL INHALER [Concomitant]
  6. FLUTICASONE/SALMETEROL 250/50 [Concomitant]
  7. ESTROGEN ESTERIFIED/METHYLTESTOSTERONE 1.25/2.5 [Concomitant]
     Route: 048
  8. ALENDRONATE7 [Concomitant]
     Route: 048
  9. FOLIC ACID [Concomitant]
     Route: 048
  10. MULTI-VITAMIN [Concomitant]
     Route: 048
  11. TIOTROPIUM [Concomitant]
  12. RABEPRAZOLE SODIUM [Concomitant]
     Route: 048
  13. IBUPROFEN [Concomitant]
     Route: 048
  14. FESOTERODINE LA [Concomitant]
     Route: 048
  15. PHENYTOIN [Suspect]
     Indication: CONVULSION
     Dosage: 300 MG ALT WITH 200 MG
     Route: 048
  16. DONEPEZIL HCL [Concomitant]
     Route: 048
  17. HYDROXYCHLOROQUINE [Concomitant]
     Route: 048
  18. AZELASTINE HCL [Concomitant]
     Route: 045
  19. ALUMINUM HYDROXIDE/MAGNESIUM HYDROXIDE/SIMETHICONE SUSPENSION [Concomitant]
  20. TRIAMCINOLONE NASAL SPRAY [Concomitant]
     Route: 045
  21. PREDNISONE [Concomitant]
     Route: 048
  22. CALCIUM + VITAMIN D [Concomitant]
     Route: 048
  23. PHENYTOIN [Concomitant]
     Route: 048
  24. CYANOCOBALAMIN [Concomitant]
     Route: 048
  25. OXYCODONE AND ACETAMINOPHEN [Concomitant]
     Route: 048
  26. FUROSEMIDE [Concomitant]
     Route: 048
  27. PROPRANOLOL [Concomitant]
     Route: 048
  28. CLOPIDOGREL [Concomitant]
     Route: 048
  29. FENTANYL [Concomitant]
     Route: 061
  30. AMLODIPINE [Concomitant]
     Route: 048
  31. PHENYTOIN [Concomitant]
     Route: 048
  32. PROCHLORPERAZINE [Concomitant]
     Route: 048
  33. LIDOCAINE [Concomitant]
     Route: 061
  34. ASPIRIN [Concomitant]
     Route: 048

REACTIONS (6)
  - TOXICITY TO VARIOUS AGENTS [None]
  - ATAXIA [None]
  - BLOOD ALBUMIN DECREASED [None]
  - SINUS BRADYCARDIA [None]
  - FALL [None]
  - ELECTROCARDIOGRAM ST-T CHANGE [None]
